FAERS Safety Report 4961022-5 (Version None)
Quarter: 2006Q2

REPORT INFORMATION
  Report Type: 
  Country: None (occurrence: None)
  Receive Date: 20060403
  Receipt Date: 20060322
  Transmission Date: 20061013
  Serious: Yes (Other)
  Sender: FDA-Public Use
  Company Number: 2006AC00583

PATIENT
  Age: 72 Year
  Sex: Female

DRUGS (2)
  1. ROPIVACAINE [Suspect]
     Indication: ANAESTHESIA
     Route: 053
  2. GENERAL ANESTHETIC NOS [Suspect]
     Indication: GENERAL ANAESTHESIA

REACTIONS (2)
  - FLAIL CHEST [None]
  - RESPIRATORY FAILURE [None]
